FAERS Safety Report 18876035 (Version 2)
Quarter: 2021Q1

REPORT INFORMATION
  Report Type: Spontaneous
  Country: IT (occurrence: IT)
  Receive Date: 20210211
  Receipt Date: 20210225
  Transmission Date: 20210420
  Serious: Yes (Life-Threatening, Hospitalization)
  Sender: FDA-Public Use
  Company Number: IT-TEVA-2021-IT-1877072

PATIENT
  Age: 46 Year
  Sex: Female

DRUGS (5)
  1. AMITRIPTYLINE [Suspect]
     Active Substance: AMITRIPTYLINE
     Indication: SEDATIVE THERAPY
     Dosage: SHE INGESTED AN ORAL SOLUTION CONTAINING 800 MG OF AMITRIPTYLINE AS A SUPPOSED SEDATIVE
     Route: 048
  2. LEVETIRACETAM. [Suspect]
     Active Substance: LEVETIRACETAM
     Indication: PARTIAL SEIZURES
     Route: 048
  3. LORMETAZEPAM [Suspect]
     Active Substance: LORMETAZEPAM
     Indication: SEDATIVE THERAPY
     Dosage: SOLUTION, DAILY DRUG CONSUMPTION OF 150?250 MG
     Route: 048
  4. DIAZEPAM. [Suspect]
     Active Substance: DIAZEPAM
     Indication: PARTIAL SEIZURES
     Dosage: REPEATED IV TREATMENT
     Route: 042
  5. CLONAZEPAM. [Suspect]
     Active Substance: CLONAZEPAM
     Indication: PARTIAL SEIZURES
     Route: 048

REACTIONS (6)
  - Intentional product misuse [Unknown]
  - Drug withdrawal syndrome [Recovered/Resolved]
  - Drug ineffective [Unknown]
  - Overdose [Unknown]
  - Partial seizures [Recovered/Resolved]
  - Drug abuse [Recovered/Resolved]
